FAERS Safety Report 8065603-4 (Version None)
Quarter: 2012Q1

REPORT INFORMATION
  Report Type: 
  Country: None (occurrence: None)
  Receive Date: 20120117
  Receipt Date: 20120105
  Transmission Date: 20120608
  Serious: Yes (Other)
  Sender: FDA-Public Use
  Company Number: 1000026875

PATIENT
  Age: 42 Year
  Sex: Male

DRUGS (5)
  1. MEMANTINE HCL [Suspect]
     Indication: DEMENTIA ALZHEIMER'S TYPE
     Dosage: 10 MG (10 MG, 1 IN 1 D)
     Dates: start: 20110613, end: 20110620
  2. EXELON [Suspect]
     Indication: DEMENTIA ALZHEIMER'S TYPE
     Dosage: 4.6 MG (4.6 MG, 1 IN 1 D), TRANSDERMAL
     Route: 062
     Dates: start: 20110613
  3. NITROMINT-R (GLYCERYL TRINITRATE) (GLYCERYL TRINITRATE) [Concomitant]
  4. RENITEC (ENALPRIL MALEATE) (ENALPRIL MALEATE) [Concomitant]
  5. AMILOZID B (AMILORIDE, HYDROCHLOROTHIAZIDE) (AMILORIDE, HYDROCHLOROTHI [Concomitant]

REACTIONS (5)
  - AGITATION [None]
  - INSOMNIA [None]
  - GENERAL PHYSICAL CONDITION ABNORMAL [None]
  - VERBIGERATION [None]
  - DISTURBANCE IN ATTENTION [None]
